FAERS Safety Report 8804338 (Version 1)
Quarter: 2012Q4

REPORT INFORMATION
  Report Type: Report from Study
  Country: US (occurrence: US)
  Receive Date: 20120924
  Receipt Date: 20120924
  Transmission Date: 20130627
  Serious: Yes (Hospitalization, Other)
  Sender: FDA-Public Use
  Company Number: US-BAYER-2012-095996

PATIENT
  Age: 60 Year
  Sex: Male

DRUGS (1)
  1. CIPROFLOXACIN MONOHYDROCHLORIDE [Suspect]
     Indication: ANTIBIOTIC PROPHYLAXIS
     Dosage: 500 mg, BID, 6 doses, starting the evening before procedure
     Route: 048

REACTIONS (6)
  - Prostatic abscess [Unknown]
  - Staphylococcal infection [Unknown]
  - Treatment noncompliance [None]
  - Proctalgia [Unknown]
  - Pyuria [Unknown]
  - Device dislocation [Unknown]
